FAERS Safety Report 8367486-1 (Version None)
Quarter: 2012Q2

REPORT INFORMATION
  Report Type: 
  Country: None (occurrence: None)
  Receive Date: 20120517
  Receipt Date: 20120312
  Transmission Date: 20120825
  Serious: No
  Sender: FDA-Public Use
  Company Number: US-GLAXOSMITHKLINE-A0969729A

PATIENT
  Age: 53 Year
  Sex: Male

DRUGS (5)
  1. IBUPROFEN [Concomitant]
  2. NORTRIPTYLINE HCL [Concomitant]
  3. VOTRIENT [Suspect]
     Indication: RENAL CELL CARCINOMA
     Dosage: 4TAB FOUR TIMES PER DAY
     Route: 048
     Dates: start: 20120229
  4. LANTUS [Concomitant]
  5. AMOXICILLIN [Concomitant]

REACTIONS (10)
  - CHEST DISCOMFORT [None]
  - FEELING ABNORMAL [None]
  - FREQUENT BOWEL MOVEMENTS [None]
  - HEADACHE [None]
  - CHEST PAIN [None]
  - HYPERSOMNIA [None]
  - FATIGUE [None]
  - PALPITATIONS [None]
  - HYPERTENSION [None]
  - ABDOMINAL PAIN UPPER [None]
